FAERS Safety Report 15536742 (Version 2)
Quarter: 2018Q4

REPORT INFORMATION
  Report Type: Spontaneous
  Country: US (occurrence: US)
  Receive Date: 20181022
  Receipt Date: 20181023
  Transmission Date: 20190205
  Serious: Yes (Hospitalization, Other)
  Sender: FDA-Public Use
  Company Number: US-JNJFOC-20181029452

PATIENT
  Age: 59 Year
  Sex: Male

DRUGS (7)
  1. IMBRUVICA [Suspect]
     Active Substance: IBRUTINIB
     Indication: CHRONIC LYMPHOCYTIC LEUKAEMIA
     Dates: start: 20180320
  2. TYLENOL [Concomitant]
     Active Substance: ACETAMINOPHEN
  3. FLUTICASONE PROPIONATE. [Concomitant]
     Active Substance: FLUTICASONE PROPIONATE
  4. LEVAQUIN [Concomitant]
     Active Substance: LEVOFLOXACIN
  5. LEVOTHYROXINE. [Concomitant]
     Active Substance: LEVOTHYROXINE
     Indication: HYPOTHYROIDISM
  6. BIAXIN [Concomitant]
     Active Substance: CLARITHROMYCIN
  7. OMEPRAZOLE. [Concomitant]
     Active Substance: OMEPRAZOLE
     Indication: DYSPEPSIA

REACTIONS (5)
  - Influenza like illness [Unknown]
  - Cytomegalovirus test positive [Unknown]
  - Hyperkalaemia [Recovered/Resolved]
  - Pyrexia [Not Recovered/Not Resolved]
  - Blood calcium decreased [Recovering/Resolving]

NARRATIVE: CASE EVENT DATE: 201803
